FAERS Safety Report 19703148 (Version 2)
Quarter: 2025Q4

REPORT INFORMATION
  Report Type: Report from Study
  Country: EU (occurrence: EU)
  Receive Date: 20210816
  Receipt Date: 20251002
  Transmission Date: 20260118
  Serious: Yes (Other)
  Sender: ROCHE
  Company Number: EU-ROCHE-2881407

PATIENT
  Age: 43 Year
  Sex: Male

DRUGS (15)
  1. SULFAMETHOXAZOLE\TRIMETHOPRIM [Suspect]
     Active Substance: SULFAMETHOXAZOLE\TRIMETHOPRIM
     Indication: Graft versus host disease
     Route: 065
  2. MYCOPHENOLATE MOFETIL [Suspect]
     Active Substance: MYCOPHENOLATE MOFETIL
     Indication: Graft versus host disease
     Route: 048
  3. SIROLIMUS [Suspect]
     Active Substance: SIROLIMUS
     Indication: Graft versus host disease
     Route: 065
  4. CYCLOPHOSPHAMIDE [Suspect]
     Active Substance: CYCLOPHOSPHAMIDE
     Indication: Graft versus host disease
     Route: 065
  5. ACYCLOVIR [Suspect]
     Active Substance: ACYCLOVIR
     Indication: Graft versus host disease
     Route: 065
  6. LEVOFLOXACIN [Suspect]
     Active Substance: LEVOFLOXACIN
     Indication: Graft versus host disease
     Route: 065
  7. VORICONAZOLE [Suspect]
     Active Substance: VORICONAZOLE
     Indication: Graft versus host disease
     Route: 065
  8. PREDNISONE [Suspect]
     Active Substance: PREDNISONE
     Indication: Graft versus host disease
     Route: 065
  9. TREOSULFAN [Concomitant]
     Active Substance: TREOSULFAN
  10. FLUDARABINE [Concomitant]
     Active Substance: FLUDARABINE PHOSPHATE
  11. RALTEGRAVIR [Concomitant]
     Active Substance: RALTEGRAVIR
  12. ABACAVIR [Concomitant]
     Active Substance: ABACAVIR
  13. METHOTREXATE [Concomitant]
     Active Substance: METHOTREXATE
  14. IMATINIB [Concomitant]
     Active Substance: IMATINIB
  15. RUXOLITINIB [Concomitant]
     Active Substance: RUXOLITINIB

REACTIONS (5)
  - Pneumonia influenzal [Unknown]
  - Herpes virus infection [Unknown]
  - Pneumonia respiratory syncytial viral [Unknown]
  - Cytomegalovirus infection reactivation [Unknown]
  - Off label use [Unknown]
